FAERS Safety Report 4668981-9 (Version None)
Quarter: 2005Q2

REPORT INFORMATION
  Report Type: 
  Country: None (occurrence: None)
  Receive Date: 20050523
  Receipt Date: 20050510
  Transmission Date: 20051028
  Serious: Yes (Hospitalization)
  Sender: FDA-Public Use
  Company Number: IT-GLAXOSMITHKLINE-B0380491A

PATIENT
  Age: 37 Year
  Sex: Female
  Weight: 50 kg

DRUGS (5)
  1. GW433908 [Suspect]
     Indication: HIV INFECTION
     Dosage: 700MG TWICE PER DAY
     Route: 048
     Dates: start: 20041223, end: 20050307
  2. RITONAVIR [Suspect]
     Indication: HIV INFECTION
     Dosage: 100MG TWICE PER DAY
     Route: 048
     Dates: start: 20041223, end: 20050317
  3. ATAZANAVIR [Suspect]
     Indication: HIV INFECTION
     Dosage: 300MG PER DAY
     Route: 048
     Dates: start: 20050310
  4. LAMIVUDINE [Concomitant]
     Indication: HIV INFECTION
     Dosage: 75MG PER DAY
     Route: 048
     Dates: start: 20050310
  5. ANTIHYPERTENSIVE [Concomitant]

REACTIONS (2)
  - DRUG TOXICITY [None]
  - SINOATRIAL BLOCK [None]
